FAERS Safety Report 6185772-0 (Version None)
Quarter: 2009Q2

REPORT INFORMATION
  Report Type: 
  Country: None (occurrence: None)
  Receive Date: 20090507
  Receipt Date: 20090424
  Transmission Date: 20091009
  Serious: Yes (Other)
  Sender: FDA-Public Use
  Company Number: TRP_06189_2009

PATIENT
  Sex: Male

DRUGS (2)
  1. RIBASPHERE [Suspect]
     Indication: HEPATITIS C
     Dosage: 800 MG, DAILY
     Dates: start: 20081004, end: 20090314
  2. PEGASYS [Suspect]
     Indication: HEPATITIS C
     Dosage: 180 ?G
     Dates: start: 20081004, end: 20090314

REACTIONS (7)
  - ANAEMIA [None]
  - AUTOIMMUNE HEPATITIS [None]
  - HEADACHE [None]
  - INSOMNIA [None]
  - TACHYPHRENIA [None]
  - VISUAL IMPAIRMENT [None]
  - WEIGHT DECREASED [None]
